FAERS Safety Report 17261645 (Version 1)
Quarter: 2020Q1

REPORT INFORMATION
  Report Type: Spontaneous
  Country: CA (occurrence: CA)
  Receive Date: 20200113
  Receipt Date: 20200113
  Transmission Date: 20200409
  Serious: Yes (Death, Hospitalization, Other)
  Sender: FDA-Public Use
  Company Number: CA-TEVA-2020-CA-1166960

PATIENT
  Age: 55 Year
  Sex: Female

DRUGS (5)
  1. BIPHENTIN [Suspect]
     Active Substance: METHYLPHENIDATE
     Indication: ATTENTION DEFICIT/HYPERACTIVITY DISORDER
     Route: 065
  2. MORPHINE SULFATE. [Suspect]
     Active Substance: MORPHINE SULFATE
     Indication: ANALGESIC THERAPY
     Route: 065
  3. BIPHENTIN [Suspect]
     Active Substance: METHYLPHENIDATE
     Route: 065
  4. BIPHENTIN [Suspect]
     Active Substance: METHYLPHENIDATE
     Dosage: 60 MILLIGRAM DAILY;
     Route: 065
  5. TECTA [Concomitant]
     Active Substance: PANTOPRAZOLE MAGNESIUM
     Indication: GASTRITIS
     Route: 048

REACTIONS (7)
  - Coronary artery dissection [Fatal]
  - Agitation [Fatal]
  - Aortic intramural haematoma [Fatal]
  - Myocardial ischaemia [Fatal]
  - Abdominal pain [Fatal]
  - Cardiac arrest [Fatal]
  - Myocardial infarction [Fatal]
